FAERS Safety Report 5767951-7 (Version None)
Quarter: 2008Q2

REPORT INFORMATION
  Report Type: 
  Country: None (occurrence: None)
  Receive Date: 20080606
  Receipt Date: 20080505
  Transmission Date: 20081010
  Serious: Yes (Hospitalization)
  Sender: FDA-Public Use
  Company Number: 001#1#2008-00286

PATIENT
  Age: 73 Year
  Sex: Male

DRUGS (5)
  1. ALPROSTADIL [Suspect]
     Dosage: INTRAVENOUS
     Route: 042
     Dates: end: 20080422
  2. ACETYLSALICYLIC ACID SRT [Concomitant]
  3. LORZAAR PLUS (HYDROCHLOROTHIAZIDE, LOSARTAN POTASSIUM) [Concomitant]
  4. FUROSEMIDE [Concomitant]
  5. ALLOPURINOL [Concomitant]

REACTIONS (13)
  - AORTIC VALVE INCOMPETENCE [None]
  - AORTIC VALVE SCLEROSIS [None]
  - APHASIA [None]
  - BLOOD TRIGLYCERIDES INCREASED [None]
  - CARDIOMEGALY [None]
  - CEREBRAL MICROANGIOPATHY [None]
  - CEREBROVASCULAR ACCIDENT [None]
  - COGNITIVE DISORDER [None]
  - DEMENTIA [None]
  - FAT EMBOLISM [None]
  - HYPERCHOLESTEROLAEMIA [None]
  - LACUNAR INFARCTION [None]
  - PARAPHILIA [None]
